FAERS Safety Report 10092240 (Version 2)
Quarter: 2014Q2

REPORT INFORMATION
  Report Type: Spontaneous
  Country: US (occurrence: US)
  Receive Date: 20140421
  Receipt Date: 20140421
  Transmission Date: 20141212
  Serious: No
  Sender: FDA-Public Use
  Company Number: US-SANOFI-AVENTIS-2013SA024960

PATIENT
  Age: 81 Year
  Sex: Female
  Weight: 65.77 kg

DRUGS (4)
  1. ALLEGRA [Suspect]
     Indication: URTICARIA
     Route: 048
     Dates: start: 20130305, end: 20130313
  2. ZYRTEC [Concomitant]
     Indication: URTICARIA
     Dosage: JAN 28
  3. ATARAX [Concomitant]
     Indication: URTICARIA
  4. PREDNISONE [Concomitant]
     Indication: URTICARIA

REACTIONS (5)
  - Urticaria [Not Recovered/Not Resolved]
  - Rash [Not Recovered/Not Resolved]
  - Swelling [Not Recovered/Not Resolved]
  - Pruritus [Not Recovered/Not Resolved]
  - Drug dose omission [Unknown]
